FAERS Safety Report 6633975-0 (Version None)
Quarter: 2010Q1

REPORT INFORMATION
  Report Type: 
  Country: None (occurrence: None)
  Receive Date: 20100315
  Receipt Date: 20100301
  Transmission Date: 20100710
  Serious: Yes (Other)
  Sender: FDA-Public Use
  Company Number: PHEH2010US02182

PATIENT
  Sex: Male
  Weight: 106.12 kg

DRUGS (4)
  1. TASIGNA [Suspect]
     Indication: CHRONIC MYELOID LEUKAEMIA
     Dosage: 400 MG, BID
     Route: 048
     Dates: start: 20100111, end: 20100114
  2. PLAVIX [Suspect]
  3. ASPIRIN [Suspect]
  4. HYDROXYUREA [Suspect]
     Dosage: 500 MG, QD
     Route: 048

REACTIONS (20)
  - ARTERIOSCLEROSIS [None]
  - ARTHRITIS [None]
  - ASTHENIA [None]
  - BENIGN PROSTATIC HYPERPLASIA [None]
  - CONTUSION [None]
  - DIABETES MELLITUS [None]
  - DIARRHOEA [None]
  - DRUG INTOLERANCE [None]
  - ECCHYMOSIS [None]
  - FATIGUE [None]
  - GOUTY ARTHRITIS [None]
  - HYPERCHOLESTEROLAEMIA [None]
  - HYPERTENSION [None]
  - LOSS OF CONSCIOUSNESS [None]
  - MYELOPROLIFERATIVE DISORDER [None]
  - MYOCARDIAL INFARCTION [None]
  - NAUSEA [None]
  - PAIN [None]
  - VISUAL IMPAIRMENT [None]
  - VOMITING [None]
